FAERS Safety Report 6378559-7 (Version None)
Quarter: 2009Q3

REPORT INFORMATION
  Report Type: 
  Country: None (occurrence: None)
  Receive Date: 20090928
  Receipt Date: 20090916
  Transmission Date: 20100115
  Serious: Yes (Death, Life-Threatening, Hospitalization)
  Sender: FDA-Public Use
  Company Number: DE-JNJFOC-20051205016

PATIENT
  Age: 67 Year
  Sex: Male

DRUGS (18)
  1. REMICADE [Suspect]
     Indication: RHEUMATOID ARTHRITIS
     Route: 042
  2. PREDNISOLONE [Suspect]
  3. PREDNISOLONE [Suspect]
     Indication: POLYARTHRITIS
  4. METHOTREXATE [Concomitant]
     Route: 065
     Dates: start: 20030301, end: 20050801
  5. LEFLUNOMIDE [Concomitant]
     Route: 065
  6. ETANERCEPT [Concomitant]
     Route: 065
  7. RAMIPRIL [Concomitant]
  8. SPIRIVA [Concomitant]
  9. ALLOPURINOL [Concomitant]
  10. DILATREND [Concomitant]
  11. MST [Concomitant]
  12. NULYTELY [Concomitant]
  13. PANTOZOL [Concomitant]
  14. VITAMIN B-12 [Concomitant]
  15. FURORESE [Concomitant]
  16. PROTELOS [Concomitant]
  17. SPIRONOLACTONE [Concomitant]
  18. D3-VICOTRAT [Concomitant]

REACTIONS (6)
  - AORTIC DISORDER [None]
  - DIVERTICULAR PERFORATION [None]
  - HYPERTENSIVE HEART DISEASE [None]
  - LOW CARDIAC OUTPUT SYNDROME [None]
  - POLYARTHRITIS [None]
  - WOUND DEHISCENCE [None]
